FAERS Safety Report 10198437 (Version 1)
Quarter: 2014Q2

REPORT INFORMATION
  Report Type: Spontaneous
  Country: US (occurrence: US)
  Receive Date: 20140527
  Receipt Date: 20140527
  Transmission Date: 20141212
  Serious: No
  Sender: FDA-Public Use
  Company Number: US-GILEAD-2014-0102696

PATIENT
  Sex: Male

DRUGS (3)
  1. SOVALDI [Suspect]
     Indication: PRODUCT USED FOR UNKNOWN INDICATION
     Dosage: 2 DF, BID
     Route: 048
     Dates: start: 20140515, end: 20140515
  2. SOVALDI [Suspect]
     Dosage: 1 DF, QD
     Route: 048
  3. RIBAVIRIN [Concomitant]

REACTIONS (1)
  - Accidental overdose [Recovered/Resolved]
